FAERS Safety Report 24338697 (Version 1)
Quarter: 2024Q3

REPORT INFORMATION
  Report Type: Spontaneous
  Country: ES (occurrence: ES)
  Receive Date: 20240919
  Receipt Date: 20240919
  Transmission Date: 20241017
  Serious: Yes (Hospitalization)
  Sender: MYLAN
  Company Number: ES-MYLANLABS-2024M1084111

PATIENT
  Age: 68 Year
  Sex: Female

DRUGS (6)
  1. PREDNISONE [Suspect]
     Active Substance: PREDNISONE
     Indication: Myasthenia gravis
     Dosage: 60 MILLIGRAM, QD
     Route: 065
  2. CYCLOSPORINE [Suspect]
     Active Substance: CYCLOSPORINE
     Indication: Myasthenia gravis
     Dosage: 100 MILLIGRAM, BID
     Route: 048
  3. VALGANCICLOVIR [Suspect]
     Active Substance: VALGANCICLOVIR
     Indication: Cytomegalovirus chorioretinitis
     Dosage: UNK
     Route: 048
  4. VALGANCICLOVIR [Suspect]
     Active Substance: VALGANCICLOVIR
     Indication: Necrotising retinitis
  5. GANCICLOVIR [Suspect]
     Active Substance: GANCICLOVIR
     Indication: Cytomegalovirus chorioretinitis
     Dosage: INTRAVITREAL GANCICLOVIR INJECTION 2MG/0.1ML; RECEIVED ?..
  6. GANCICLOVIR [Suspect]
     Active Substance: GANCICLOVIR
     Indication: Necrotising retinitis

REACTIONS (1)
  - Drug ineffective [Unknown]
